FAERS Safety Report 6373689-8 (Version None)
Quarter: 2009Q3

REPORT INFORMATION
  Report Type: 
  Country: None (occurrence: None)
  Receive Date: 20090924
  Receipt Date: 20090416
  Transmission Date: 20100115
  Serious: Yes (Hospitalization)
  Sender: FDA-Public Use
  Company Number: US-ASTRAZENECA-2009UW09632

PATIENT
  Age: 27 Year
  Sex: Male

DRUGS (1)
  1. SEROQUEL [Suspect]
     Route: 048
     Dates: end: 20090415

REACTIONS (4)
  - HYPERHIDROSIS [None]
  - HYPOTENSION [None]
  - PNEUMONIA [None]
  - TACHYCARDIA [None]
